FAERS Safety Report 16226510 (Version 1)
Quarter: 2019Q2

REPORT INFORMATION
  Report Type: Report from Study
  Country: US (occurrence: US)
  Receive Date: 20190423
  Receipt Date: 20190423
  Transmission Date: 20190711
  Serious: Yes (Other)
  Sender: FDA-Public Use
  Company Number: US-PFIZER INC-2019080500

PATIENT
  Age: 71 Year
  Sex: Female

DRUGS (1)
  1. XELJANZ [Suspect]
     Active Substance: TOFACITINIB CITRATE
     Indication: RHEUMATOID ARTHRITIS
     Dosage: 5 MG, 2X/DAY
     Route: 048
     Dates: start: 20190131, end: 2019

REACTIONS (10)
  - Myalgia [Recovering/Resolving]
  - Ear infection [Recovering/Resolving]
  - Arthritis infective [Unknown]
  - Localised infection [Recovering/Resolving]
  - Headache [Unknown]
  - Intentional product misuse [Unknown]
  - Mood altered [Unknown]
  - Arthralgia [Recovering/Resolving]
  - Sinus headache [Unknown]
  - Back pain [Not Recovered/Not Resolved]

NARRATIVE: CASE EVENT DATE: 2019
